FAERS Safety Report 12408223 (Version 2)
Quarter: 2016Q3

REPORT INFORMATION
  Report Type: Spontaneous
  Country: US (occurrence: US)
  Receive Date: 20160526
  Receipt Date: 20160721
  Transmission Date: 20161109
  Serious: Yes (Other)
  Sender: FDA-Public Use
  Company Number: US-PFIZER INC-2016274094

PATIENT
  Age: 52 Year
  Sex: Female
  Weight: 100 kg

DRUGS (11)
  1. LIPITOR [Suspect]
     Active Substance: ATORVASTATIN CALCIUM
     Indication: BLOOD CHOLESTEROL ABNORMAL
  2. ASPRIN [Concomitant]
     Active Substance: ASPIRIN
     Indication: THROMBOSIS PROPHYLAXIS
     Dosage: 80 MG, DAILY
     Dates: start: 2004
  3. LIPITOR [Suspect]
     Active Substance: ATORVASTATIN CALCIUM
     Indication: LOW DENSITY LIPOPROTEIN INCREASED
     Dosage: 20 MG, DAILY
     Route: 048
     Dates: start: 2004
  4. FENOFIBRATE. [Concomitant]
     Active Substance: FENOFIBRATE
     Indication: BLOOD CHOLESTEROL ABNORMAL
     Dosage: 160 MG, DAILY
     Dates: start: 2006
  5. ZIPRASIDONE. [Concomitant]
     Active Substance: ZIPRASIDONE
     Dosage: 60 MG, DAILY (PER DAY)
     Dates: start: 2004
  6. LIPITOR [Suspect]
     Active Substance: ATORVASTATIN CALCIUM
     Indication: BLOOD CHOLESTEROL INCREASED
  7. LIPITOR [Suspect]
     Active Substance: ATORVASTATIN CALCIUM
     Indication: CARDIOVASCULAR EVENT PROPHYLAXIS
     Dosage: 40 MG, DAILY
     Route: 048
     Dates: end: 2010
  8. VITAMIN D [Concomitant]
     Active Substance: CHOLECALCIFEROL
     Indication: VITAMIN D DEFICIENCY
     Dosage: UNK, WEEKLY
     Dates: start: 2008
  9. ALBUTEROL. [Concomitant]
     Active Substance: ALBUTEROL
     Indication: ASTHMA
     Dosage: UNK, DAILY
     Dates: start: 1998
  10. VALSARTAN. [Concomitant]
     Active Substance: VALSARTAN
     Indication: HYPERTENSION
     Dosage: UNK, 160/12.5 DAILY (PER DAY)
     Dates: start: 2007
  11. AMLODIPINE [Concomitant]
     Active Substance: AMLODIPINE BESYLATE
     Indication: HYPERTENSION
     Dosage: 2.5 MG, DAILY
     Dates: start: 2007

REACTIONS (1)
  - Type 2 diabetes mellitus [Not Recovered/Not Resolved]

NARRATIVE: CASE EVENT DATE: 200812
